FAERS Safety Report 5140404-5 (Version None)
Quarter: 2006Q4

REPORT INFORMATION
  Report Type: 
  Country: None (occurrence: None)
  Receive Date: 20061024
  Receipt Date: 20061006
  Transmission Date: 20070319
  Serious: Yes (Hospitalization)
  Sender: FDA-Public Use
  Company Number: FR200610001097

PATIENT
  Age: 72 Year
  Sex: Female

DRUGS (6)
  1. FORTEO [Suspect]
     Indication: OSTEOPOROSIS
     Dosage: 20 UG DAILY (1/D), SUBCUTANEOUS
     Route: 058
     Dates: start: 20060612
  2. FORTEO [Concomitant]
  3. OXYCONTIN [Concomitant]
  4. SPASFON (PHLORGLUCINOL, TRIMETHYLPHLOROGLUCINOL) [Concomitant]
  5. ACETAMINOPHEN [Concomitant]
  6. LEXOMIL (BROMAZEPAM) [Concomitant]

REACTIONS (2)
  - ABDOMINAL PAIN [None]
  - NAUSEA [None]
